FAERS Safety Report 13195200 (Version 1)
Quarter: 2017Q1

REPORT INFORMATION
  Report Type: Spontaneous
  Country: US (occurrence: US)
  Receive Date: 20170207
  Receipt Date: 20170207
  Transmission Date: 20170428
  Serious: Yes (Other)
  Sender: FDA-Public Use
  Company Number: None

PATIENT
  Age: 54 Year
  Sex: Female
  Weight: 71.82 kg

DRUGS (2)
  1. LEVOTHYROXINE 75MCG [Suspect]
     Active Substance: LEVOTHYROXINE
     Indication: HYPOTHYROIDISM
     Route: 048
     Dates: start: 20150323, end: 20161128
  2. ARMOUR THYROID [Suspect]
     Active Substance: THYROID, PORCINE
     Route: 048
     Dates: start: 20161128, end: 20170203

REACTIONS (8)
  - Irritability [None]
  - Emotional disorder [None]
  - Pain in extremity [None]
  - Weight increased [None]
  - Fatigue [None]
  - Neuropathy peripheral [None]
  - Musculoskeletal stiffness [None]
  - Tremor [None]

NARRATIVE: CASE EVENT DATE: 20161111
